FAERS Safety Report 4689525-1 (Version None)
Quarter: 2005Q2

REPORT INFORMATION
  Report Type: 
  Country: None (occurrence: None)
  Receive Date: 20050613
  Receipt Date: 20050613
  Transmission Date: 20051028
  Serious: Yes (Other)
  Sender: FDA-Public Use
  Company Number: None

PATIENT
  Age: 54 Year
  Sex: Female
  Weight: 52.1637 kg

DRUGS (1)
  1. FLUOXETINE [Suspect]
     Dosage: 50 MG/D
     Dates: start: 20050401

REACTIONS (3)
  - GASTROINTESTINAL DISORDER [None]
  - MUSCLE SPASMS [None]
  - NAUSEA [None]
